FAERS Safety Report 6249023-0 (Version None)
Quarter: 2009Q2

REPORT INFORMATION
  Report Type: 
  Country: None (occurrence: None)
  Receive Date: 20090624
  Receipt Date: 20090624
  Transmission Date: 20091009
  Serious: Yes (Life-Threatening)
  Sender: FDA-Public Use
  Company Number: None

PATIENT
  Age: 58 Year
  Sex: Female
  Weight: 113.3993 kg

DRUGS (3)
  1. CELEXA [Suspect]
     Indication: DEPRESSION
     Dosage: 20 MG ONCE DAILY PO
     Route: 048
     Dates: start: 20050101, end: 20090520
  2. CELEXA [Suspect]
     Indication: PAIN
     Dosage: 20 MG ONCE DAILY PO
     Route: 048
     Dates: start: 20050101, end: 20090520
  3. TRAMADOL/APAP 37.5 MG TAB EXPRESS SCRIPTS [Suspect]
     Indication: BACK PAIN
     Dosage: 37.5 MG ONE TO THREE DAILY PO
     Route: 048
     Dates: start: 20050101, end: 20090520

REACTIONS (22)
  - AGGRESSION [None]
  - AMNESIA [None]
  - ANGER [None]
  - ANXIETY [None]
  - BLOOD PRESSURE ABNORMAL [None]
  - CONDITION AGGRAVATED [None]
  - CONVULSION [None]
  - DISTURBANCE IN ATTENTION [None]
  - DRUG INEFFECTIVE [None]
  - DYSPNOEA [None]
  - HEADACHE [None]
  - ILLOGICAL THINKING [None]
  - MENTAL IMPAIRMENT [None]
  - MOOD ALTERED [None]
  - MUSCULOSKELETAL STIFFNESS [None]
  - NIGHTMARE [None]
  - PAIN [None]
  - PALPITATIONS [None]
  - PARAESTHESIA [None]
  - SLEEP APNOEA SYNDROME [None]
  - TACHYCARDIA [None]
  - VISUAL IMPAIRMENT [None]
